FAERS Safety Report 24645489 (Version 2)
Quarter: 2024Q4

REPORT INFORMATION
  Report Type: Report from Study
  Country: CA (occurrence: CA)
  Receive Date: 20241121
  Receipt Date: 20241230
  Transmission Date: 20250114
  Serious: Yes (Other)
  Sender: TAKEDA
  Company Number: CA-TAKEDA-2022TUS073308

PATIENT
  Age: 19 Year
  Sex: Male

DRUGS (5)
  1. VEDOLIZUMAB [Suspect]
     Active Substance: VEDOLIZUMAB
     Indication: Colitis ulcerative
     Dosage: 300 MILLIGRAM
  2. VEDOLIZUMAB [Suspect]
     Active Substance: VEDOLIZUMAB
     Dosage: 300 MILLIGRAM
  3. VEDOLIZUMAB [Suspect]
     Active Substance: VEDOLIZUMAB
     Dosage: 300 MILLIGRAM, Q6WEEKS
     Dates: start: 20240709
  4. VEDOLIZUMAB [Suspect]
     Active Substance: VEDOLIZUMAB
     Dosage: 300 MILLIGRAM, Q6WEEKS
  5. IRON [Concomitant]
     Active Substance: IRON
     Indication: Blood iron decreased
     Dosage: UNK

REACTIONS (8)
  - Colitis ulcerative [Unknown]
  - Pain [Recovered/Resolved]
  - Abdominal distension [Recovered/Resolved]
  - Diarrhoea [Not Recovered/Not Resolved]
  - Faeces soft [Not Recovered/Not Resolved]
  - Chest discomfort [Recovered/Resolved]
  - Off label use [Unknown]
  - Abdominal pain [Recovered/Resolved]

NARRATIVE: CASE EVENT DATE: 20221008
